FAERS Safety Report 14871717 (Version 2)
Quarter: 2018Q2

REPORT INFORMATION
  Report Type: Report from Study
  Country: US (occurrence: US)
  Receive Date: 20180509
  Receipt Date: 20180524
  Transmission Date: 20180711
  Serious: Yes (Hospitalization, Other)
  Sender: FDA-Public Use
  Company Number: US-ACTELION-A-US2016-135383

PATIENT
  Age: 49 Year
  Sex: Female
  Weight: 58.96 kg

DRUGS (25)
  1. COMPAZINE [Concomitant]
     Active Substance: PROCHLORPERAZINE MALEATE
  2. CLARITIN [Concomitant]
     Active Substance: LORATADINE
     Dosage: 10 MG, UNK
  3. MODAFINIL. [Concomitant]
     Active Substance: MODAFINIL
     Dosage: 100 MG, UNK
     Dates: start: 20160829
  4. BUMETANIDE. [Concomitant]
     Active Substance: BUMETANIDE
     Dosage: 2 MG, UNK
     Dates: start: 20160829
  5. VELETRI [Suspect]
     Active Substance: EPOPROSTENOL
     Dosage: 24 NG/KG, PER MIN
     Route: 042
  6. TRACLEER [Suspect]
     Active Substance: BOSENTAN
     Dosage: 62.5 MG, BID
     Route: 048
  7. VENTOLIN [Concomitant]
     Active Substance: ALBUTEROL SULFATE
     Dosage: UNK
     Dates: start: 20160829
  8. SILDENAFIL. [Concomitant]
     Active Substance: SILDENAFIL
     Dosage: 20 MG, UNK
  9. VITAMIN C [Concomitant]
     Active Substance: ASCORBIC ACID
     Dosage: 1000 MG, UNK
     Dates: start: 20161129
  10. TRACLEER [Suspect]
     Active Substance: BOSENTAN
     Indication: PULMONARY ARTERIAL HYPERTENSION
     Dosage: 125 MG, UNK
     Route: 048
     Dates: start: 20151211
  11. TRACLEER [Suspect]
     Active Substance: BOSENTAN
     Dosage: UNK MG, UNK
     Route: 048
     Dates: start: 201606
  12. REVATIO [Concomitant]
     Active Substance: SILDENAFIL CITRATE
     Dosage: 20 MG, UNK
     Dates: start: 20161129
  13. ASPIRIN. [Concomitant]
     Active Substance: ASPIRIN
     Dosage: 325 MG, UNK
     Dates: start: 20160829
  14. ZOFRAN [Concomitant]
     Active Substance: ONDANSETRON HYDROCHLORIDE
     Dosage: 4 MG, UNK
     Dates: start: 20151211
  15. SIMVASTATIN. [Concomitant]
     Active Substance: SIMVASTATIN
  16. VELETRI [Suspect]
     Active Substance: EPOPROSTENOL
     Indication: PULMONARY ARTERIAL HYPERTENSION
     Dosage: 20 NG/KG, PER MIN
     Route: 042
     Dates: start: 20160328
  17. VELETRI [Suspect]
     Active Substance: EPOPROSTENOL
     Dosage: UNK
     Route: 042
     Dates: start: 20160707
  18. ZOCOR [Concomitant]
     Active Substance: SIMVASTATIN
     Dosage: 80 MG, UNK
  19. ZOCOR [Concomitant]
     Active Substance: SIMVASTATIN
     Dosage: 5 UNK, UNK
  20. VITAMIN D3 [Concomitant]
     Active Substance: CHOLECALCIFEROL
     Dosage: 1000 IU, UNK
     Dates: start: 20160928
  21. CALCIUM [Concomitant]
     Active Substance: CALCIUM
     Dosage: UNK
     Dates: start: 20160926
  22. ATORVASTATIN [Concomitant]
     Active Substance: ATORVASTATIN
     Dosage: 20 MG, UNK
     Dates: start: 20171219
  23. OMEPRAZOLE. [Concomitant]
     Active Substance: OMEPRAZOLE
     Dosage: 10 MG, UNK
     Dates: start: 20160829
  24. SPIRIVA [Concomitant]
     Active Substance: TIOTROPIUM BROMIDE MONOHYDRATE
     Dosage: UNK
     Dates: start: 20160829
  25. COLLAGEN [Concomitant]
     Active Substance: COLLAGEN
     Dosage: UNK
     Dates: start: 20170720

REACTIONS (41)
  - Supraventricular tachycardia [Recovered/Resolved]
  - Influenza [Unknown]
  - Abdominal pain upper [Unknown]
  - Pruritus [Unknown]
  - Blood iron decreased [Not Recovered/Not Resolved]
  - Fibromyalgia [Unknown]
  - Diarrhoea [Unknown]
  - Rash [Unknown]
  - Musculoskeletal pain [Not Recovered/Not Resolved]
  - Pain in extremity [Unknown]
  - Vomiting [Unknown]
  - Device breakage [Unknown]
  - Device connection issue [Unknown]
  - Dizziness [Recovered/Resolved]
  - Chest pain [Unknown]
  - Fatigue [Unknown]
  - Arthralgia [Not Recovered/Not Resolved]
  - Dyspnoea exertional [Unknown]
  - Swelling face [Unknown]
  - Rhinalgia [Unknown]
  - Gastrointestinal haemorrhage [Unknown]
  - Dyspnoea [Unknown]
  - Pulmonary hypertension [Unknown]
  - Catheter site pain [Unknown]
  - Rash generalised [Unknown]
  - Nausea [Unknown]
  - Catheter site erythema [Unknown]
  - Contusion [Unknown]
  - Nocturnal dyspnoea [Unknown]
  - Catheter site rash [Unknown]
  - Myalgia [Unknown]
  - Therapy non-responder [Unknown]
  - Peripheral swelling [Unknown]
  - Pain in jaw [Unknown]
  - Catheter site pruritus [Unknown]
  - Hypotension [Unknown]
  - Bronchitis [Unknown]
  - Pain [Unknown]
  - Condition aggravated [Not Recovered/Not Resolved]
  - Tinnitus [Unknown]
  - Catheter site vesicles [Unknown]

NARRATIVE: CASE EVENT DATE: 201606
